FAERS Safety Report 20148941 (Version 1)
Quarter: 2021Q4

REPORT INFORMATION
  Report Type: Spontaneous
  Country: US (occurrence: US)
  Receive Date: 20211204
  Receipt Date: 20211204
  Transmission Date: 20220303
  Serious: Yes (Other)
  Sender: FDA-Public Use
  Company Number: US-LUPIN PHARMACEUTICALS INC.-2021-23560

PATIENT
  Age: 40 Year
  Sex: Female
  Weight: 79.365 kg

DRUGS (4)
  1. CEFDINIR [Suspect]
     Active Substance: CEFDINIR
     Indication: Sinusitis
     Dosage: 1 DOSAGE FORM, BID
     Route: 065
     Dates: start: 20211120, end: 20211120
  2. CEFDINIR [Suspect]
     Active Substance: CEFDINIR
     Indication: Ear infection
  3. FLONASE [Concomitant]
     Active Substance: FLUTICASONE PROPIONATE
     Indication: Dust allergy
     Dosage: TWO SPRAYS, ONCE A DAY
     Route: 065
  4. FLONASE [Concomitant]
     Active Substance: FLUTICASONE PROPIONATE
     Indication: Seasonal allergy

REACTIONS (4)
  - Condition aggravated [Recovering/Resolving]
  - Coeliac disease [Recovering/Resolving]
  - Headache [Recovering/Resolving]
  - Feeling abnormal [Recovering/Resolving]

NARRATIVE: CASE EVENT DATE: 20211120
